FAERS Safety Report 12770525 (Version 1)
Quarter: 2016Q3

REPORT INFORMATION
  Report Type: Report from Study
  Country: DE (occurrence: DE)
  Receive Date: 20160922
  Receipt Date: 20160922
  Transmission Date: 20161109
  Serious: Yes (Hospitalization)
  Sender: FDA-Public Use
  Company Number: PHHO2011DE025991

PATIENT
  Age: 22 Year
  Sex: Male
  Weight: 88 kg

DRUGS (4)
  1. DACARBAZINE. [Suspect]
     Active Substance: DACARBAZINE
     Indication: MALIGNANT MELANOMA
     Dosage: 1000 MG/M2, QW3
     Route: 042
     Dates: start: 20110321
  2. TRAMETINIB [Suspect]
     Active Substance: TRAMETINIB
     Dosage: 2.0 MG, UNK
     Route: 048
     Dates: start: 20110718, end: 20110808
  3. TRAMETINIB [Suspect]
     Active Substance: TRAMETINIB
     Indication: MALIGNANT MELANOMA
     Dosage: 2.0 MG, UNK
     Route: 048
     Dates: start: 20110516, end: 20110712
  4. RAMIPRIL. [Concomitant]
     Active Substance: RAMIPRIL
     Indication: HYPERTENSION
     Dosage: 5 MG, QD
     Route: 048
     Dates: start: 200806

REACTIONS (1)
  - Aphasia [Recovered/Resolved]

NARRATIVE: CASE EVENT DATE: 20110712
